FAERS Safety Report 12310403 (Version 1)
Quarter: 2016Q2

REPORT INFORMATION
  Report Type: Report from Study
  Country: DE (occurrence: DE)
  Receive Date: 20160427
  Receipt Date: 20160427
  Transmission Date: 20160815
  Serious: Yes (Life-Threatening, Hospitalization)
  Sender: FDA-Public Use
  Company Number: DE-ROCHE-1746557

PATIENT
  Age: 61 Year
  Sex: Female
  Weight: 54 kg

DRUGS (3)
  1. GEMCITABINE [Suspect]
     Active Substance: GEMCITABINE\GEMCITABINE HYDROCHLORIDE
     Indication: OVARIAN CANCER RECURRENT
     Dosage: LAST DOSE PRIOR TO SERIOUS ADVERSE EVENT: 01/JUN/2015
     Route: 042
     Dates: start: 20150212
  2. BEVACIZUMAB [Suspect]
     Active Substance: BEVACIZUMAB
     Indication: OVARIAN CANCER RECURRENT
     Dosage: LAST DOSE PRIOR TO SERIOUS ADVERSE EVENT: 05/APR/2016
     Route: 042
     Dates: start: 20150212, end: 20160419
  3. CARBOPLATIN. [Suspect]
     Active Substance: CARBOPLATIN
     Indication: OVARIAN CANCER RECURRENT
     Dosage: LAST DOSE PRIOR TO SERIOUS ADVERSE EVENT: 01/JUN/2015
     Route: 042
     Dates: start: 20150212

REACTIONS (1)
  - Gastrointestinal mucosal disorder [Recovered/Resolved]

NARRATIVE: CASE EVENT DATE: 20160419
